FAERS Safety Report 8174532-7 (Version None)
Quarter: 2012Q1

REPORT INFORMATION
  Report Type: 
  Country: None (occurrence: None)
  Receive Date: 20120229
  Receipt Date: 20120223
  Transmission Date: 20120608
  Serious: Yes (Hospitalization)
  Sender: FDA-Public Use
  Company Number: US-PFIZER INC-2012049727

PATIENT
  Sex: Female
  Weight: 43.1 kg

DRUGS (2)
  1. NORGESTREL AND ETHINYL ESTRADIOL [Suspect]
     Indication: MENSTRUATION IRREGULAR
  2. NORGESTREL AND ETHINYL ESTRADIOL [Suspect]
     Indication: OFF LABEL USE
     Dosage: 1 DF, DAILY
     Dates: start: 20111101, end: 20120220

REACTIONS (3)
  - MENORRHAGIA [None]
  - ABDOMINAL PAIN UPPER [None]
  - VOMITING [None]
